FAERS Safety Report 5504461-6 (Version None)
Quarter: 2007Q4

REPORT INFORMATION
  Report Type: 
  Country: None (occurrence: None)
  Receive Date: 20071101
  Receipt Date: 20071023
  Transmission Date: 20080405
  Serious: Yes (Other)
  Sender: FDA-Public Use
  Company Number: DE-PFIZER INC-2007089780

PATIENT
  Age: 44 Year
  Sex: Female

DRUGS (3)
  1. LYRICA [Suspect]
     Indication: EPILEPSY
     Dosage: DAILY DOSE:200MG
     Route: 048
  2. LYRICA [Suspect]
     Indication: PSYCHOMOTOR SEIZURES
  3. LAMOTRIGINE [Concomitant]

REACTIONS (7)
  - CHEST DISCOMFORT [None]
  - HYPERACUSIS [None]
  - HYPOAESTHESIA [None]
  - INSOMNIA [None]
  - SWELLING FACE [None]
  - URINE OUTPUT DECREASED [None]
  - VISION BLURRED [None]
